FAERS Safety Report 7989238-4 (Version None)
Quarter: 2011Q4

REPORT INFORMATION
  Report Type: 
  Country: None (occurrence: None)
  Receive Date: 20111219
  Receipt Date: 20111205
  Transmission Date: 20120403
  Serious: Yes (Hospitalization)
  Sender: FDA-Public Use
  Company Number: FR-CELGENEUS-056-21880-11120679

PATIENT
  Sex: Male

DRUGS (7)
  1. DEXAMETHASONE [Suspect]
     Route: 065
     Dates: start: 20111107
  2. LEUCOVORIN CALCIUM [Concomitant]
     Indication: PROPHYLAXIS
     Route: 048
     Dates: start: 20111107, end: 20111129
  3. BORTEZOMIB [Suspect]
     Route: 065
     Dates: start: 20111107
  4. AMOXICILLIN TRIHYDRATE [Suspect]
     Indication: PROPHYLAXIS
     Route: 048
     Dates: start: 20111107, end: 20111126
  5. REVLIMID [Suspect]
     Dosage: 25 MILLIGRAM
     Route: 048
     Dates: start: 20111107
  6. BACTRIM [Suspect]
     Indication: PROPHYLAXIS
     Route: 048
     Dates: start: 20111107, end: 20111129
  7. VALACYCLOVIR HYDROCHLORIDE [Suspect]
     Indication: PROPHYLAXIS
     Route: 048
     Dates: start: 20111107, end: 20111129

REACTIONS (1)
  - RASH MACULO-PAPULAR [None]
